FAERS Safety Report 23520407 (Version 4)
Quarter: 2024Q2

REPORT INFORMATION
  Report Type: Spontaneous
  Country: CA (occurrence: CA)
  Receive Date: 20240214
  Receipt Date: 20240411
  Transmission Date: 20240716
  Serious: Yes (Hospitalization, Other)
  Sender: FDA-Public Use
  Company Number: CA-CELLTRION INC.-2024CA003619

PATIENT

DRUGS (13)
  1. INFLECTRA [Suspect]
     Active Substance: INFLIXIMAB-DYYB
     Indication: Crohn^s disease
     Dosage: 170 MG, WEEK 0 LOADING DOSE, 1 X YEAR
     Route: 051
     Dates: start: 20180423
  2. INFLECTRA [Suspect]
     Active Substance: INFLIXIMAB-DYYB
     Dosage: 170 MG, WEEK 2 LOADING DOSE,  1 X YEAR
     Route: 051
     Dates: start: 20180507
  3. INFLECTRA [Suspect]
     Active Substance: INFLIXIMAB-DYYB
     Dosage: 170 MG, WEEK 6 LOADING DOSES, 1 X YEAR
     Route: 051
     Dates: start: 20180606
  4. INFLECTRA [Suspect]
     Active Substance: INFLIXIMAB-DYYB
     Dosage: 170 MG, EVERY 8 WEEKS
     Route: 051
     Dates: start: 20180801
  5. INFLECTRA [Suspect]
     Active Substance: INFLIXIMAB-DYYB
     Dosage: 200 MG, EVERY 4 WEEKS
     Route: 051
     Dates: start: 20180828, end: 20180926
  6. INFLECTRA [Suspect]
     Active Substance: INFLIXIMAB-DYYB
     Dosage: 500 MG, EVERY 4 WEEKS
     Route: 051
     Dates: start: 20181004, end: 20190121
  7. INFLECTRA [Suspect]
     Active Substance: INFLIXIMAB-DYYB
     Dosage: 350 MG, EVERY 4 WEEKS
     Route: 051
     Dates: start: 20190215, end: 20190415
  8. INFLECTRA [Suspect]
     Active Substance: INFLIXIMAB-DYYB
     Dosage: 250 MG, EVERY 4 WEEKS
     Route: 051
     Dates: start: 20190513
  9. INFLECTRA [Suspect]
     Active Substance: INFLIXIMAB-DYYB
     Dosage: 350 MG, EVERY 4 WEEKS
     Route: 051
     Dates: start: 20190618, end: 20191003
  10. INFLECTRA [Suspect]
     Active Substance: INFLIXIMAB-DYYB
     Dosage: 200 MG, EVERY 6 WEEKS
     Route: 051
     Dates: start: 20191113
  11. INFLECTRA [Suspect]
     Active Substance: INFLIXIMAB-DYYB
     Dosage: 200 MG, EVERY 6 WEEKS
     Route: 051
     Dates: start: 20231220
  12. INFLECTRA [Suspect]
     Active Substance: INFLIXIMAB-DYYB
     Dosage: 200 MG, AFTER 7 WEEKS (PRESCRIBED WAS EVERY 6 WEEKS)
     Route: 051
     Dates: start: 20240207
  13. INFLECTRA [Suspect]
     Active Substance: INFLIXIMAB-DYYB
     Dosage: 200 MG, AFTER 6 WEEKS AND 1 DAY (PRESCRIBED WAS EVERY 6 WEEKS)
     Route: 051
     Dates: start: 20240321, end: 20240321

REACTIONS (5)
  - Condition aggravated [Recovering/Resolving]
  - Weight decreased [Not Recovered/Not Resolved]
  - Infection [Recovered/Resolved]
  - Drug specific antibody present [Unknown]
  - Inappropriate schedule of product administration [Unknown]

NARRATIVE: CASE EVENT DATE: 20240201
